FAERS Safety Report 17615154 (Version 3)
Quarter: 2020Q3

REPORT INFORMATION
  Report Type: Spontaneous
  Country: US (occurrence: US)
  Receive Date: 20200402
  Receipt Date: 20200904
  Transmission Date: 20201102
  Serious: Yes (Other)
  Sender: FDA-Public Use
  Company Number: US-PFIZER INC-2020133991

PATIENT
  Age: 57 Year
  Sex: Female
  Weight: 72.57 kg

DRUGS (1)
  1. LYRICA [Suspect]
     Active Substance: PREGABALIN
     Indication: FIBROMYALGIA
     Dosage: 200 MG (100MG, 2 CAPSULES), DAILY
     Route: 048

REACTIONS (8)
  - Acquired oesophageal web [Unknown]
  - Oesophageal stenosis [Unknown]
  - Hiatus hernia [Unknown]
  - Face injury [Unknown]
  - Weight increased [Unknown]
  - Insomnia [Unknown]
  - Headache [Unknown]
  - Fall [Unknown]
